FAERS Safety Report 5130966-6 (Version None)
Quarter: 2006Q3

REPORT INFORMATION
  Report Type: 
  Country: None (occurrence: None)
  Receive Date: 20060829
  Receipt Date: 20060710
  Transmission Date: 20061208
  Serious: No
  Sender: FDA-Public Use
  Company Number: PHEH2006US08794

PATIENT
  Age: 68 Year
  Sex: Male

DRUGS (1)
  1. EXJADE [Suspect]
     Dosage: 1500 MG, QD, ORAL
     Route: 048
     Dates: start: 20060406

REACTIONS (1)
  - VISUAL DISTURBANCE [None]
